FAERS Safety Report 6212856-0 (Version None)
Quarter: 2009Q2

REPORT INFORMATION
  Report Type: 
  Country: None (occurrence: None)
  Receive Date: 20090603
  Receipt Date: 20090525
  Transmission Date: 20091009
  Serious: Yes (Hospitalization)
  Sender: FDA-Public Use
  Company Number: FR-ASTRAZENECA-2009CG01003

PATIENT
  Age: 29649 Day
  Sex: Male

DRUGS (16)
  1. SYMBICORT [Suspect]
     Indication: CHRONIC OBSTRUCTIVE PULMONARY DISEASE
     Route: 055
     Dates: start: 20090330
  2. BRICANYL [Suspect]
     Indication: CHRONIC OBSTRUCTIVE PULMONARY DISEASE
     Route: 055
     Dates: start: 20090330
  3. PREVISCAN [Suspect]
     Indication: ATRIAL FIBRILLATION
     Route: 048
     Dates: start: 20060602, end: 20090503
  4. TAVANIC [Suspect]
     Indication: BRONCHITIS
     Route: 048
     Dates: start: 20090327, end: 20090330
  5. TAZOCILLINE [Suspect]
     Indication: BRONCHITIS
     Route: 042
     Dates: start: 20090403, end: 20090417
  6. AMIKLIN [Suspect]
     Indication: BRONCHITIS
     Route: 042
     Dates: start: 20090403, end: 20090408
  7. TIENAM [Suspect]
     Indication: BRONCHITIS
     Dates: start: 20090429, end: 20090505
  8. ATROVENT [Suspect]
     Indication: CHRONIC OBSTRUCTIVE PULMONARY DISEASE
     Route: 055
     Dates: start: 20090330
  9. LASIX [Suspect]
     Indication: CARDIAC FAILURE
     Dates: start: 20090327, end: 20090401
  10. CORDARONE [Suspect]
     Indication: VENTRICULAR TACHYCARDIA
     Dates: start: 20090327, end: 20090329
  11. CHRONADALATE [Suspect]
     Indication: HYPERTENSION
     Route: 048
     Dates: end: 20090327
  12. AMLOR [Suspect]
     Indication: HYPERTENSION
     Route: 048
     Dates: start: 20090328, end: 20090331
  13. MODURETIC 5-50 [Concomitant]
  14. EPINITRIL [Concomitant]
  15. TRIATEC [Concomitant]
  16. VENTOLIN [Concomitant]

REACTIONS (8)
  - AGRANULOCYTOSIS [None]
  - DYSPNOEA [None]
  - LYMPHOPENIA [None]
  - NEUTROPHIL COUNT INCREASED [None]
  - OEDEMA PERIPHERAL [None]
  - STAPHYLOCOCCAL INFECTION [None]
  - VENTRICULAR TACHYCARDIA [None]
  - WHITE BLOOD CELL COUNT DECREASED [None]
